FAERS Safety Report 8206913-7 (Version None)
Quarter: 2012Q1

REPORT INFORMATION
  Report Type: 
  Country: None (occurrence: None)
  Receive Date: 20120314
  Receipt Date: 20120301
  Transmission Date: 20120608
  Serious: Yes (Hospitalization, Congenital Anomaly, Other)
  Sender: FDA-Public Use
  Company Number: DE-RANBAXY-2012RR-53634

PATIENT
  Sex: Female
  Weight: 3.29 kg

DRUGS (4)
  1. METFORMIN HCL [Suspect]
     Dosage: 1000 MG, BID
     Route: 064
     Dates: start: 20100803, end: 20110111
  2. LEVOTHYROXINE SODIUM [Concomitant]
     Dosage: 50/100UG/DAY
     Route: 064
     Dates: start: 20100803, end: 20110301
  3. LEVOTHYROXINE SODIUM [Concomitant]
     Dosage: 100 UG/DAY
     Route: 064
     Dates: start: 20110301, end: 20110503
  4. DEKRISTOL [Concomitant]
     Dosage: ONCE EVERY 14 DAYS
     Route: 064
     Dates: start: 20100803, end: 20110111

REACTIONS (1)
  - OVARIAN CYST [None]
